FAERS Safety Report 17649993 (Version 1)
Quarter: 2020Q2

REPORT INFORMATION
  Report Type: Spontaneous
  Country: US (occurrence: US)
  Receive Date: 20200408
  Receipt Date: 20200408
  Transmission Date: 20200713
  Serious: Yes (Hospitalization)
  Sender: FDA-Public Use
  Company Number: None

PATIENT
  Sex: Female

DRUGS (22)
  1. LAMOTRIGINE. [Concomitant]
     Active Substance: LAMOTRIGINE
  2. OMNITROPE [Suspect]
     Active Substance: SOMATROPIN
     Indication: HYPOPITUITARISM
     Route: 058
     Dates: start: 20151203
  3. ESOMEPRA MAG [Concomitant]
  4. NIFEDIPINE. [Concomitant]
     Active Substance: NIFEDIPINE
  5. OXYCODONE AND ACETAMINOPHEN [Concomitant]
     Active Substance: ACETAMINOPHEN\OXYCODONE HYDROCHLORIDE
  6. NORVASC [Concomitant]
     Active Substance: AMLODIPINE BESYLATE
  7. RELISTOR [Concomitant]
     Active Substance: METHYLNALTREXONE BROMIDE
  8. SOLU-CORTEF [Concomitant]
     Active Substance: HYDROCORTISONE SODIUM SUCCINATE
  9. CORTEF [Concomitant]
     Active Substance: HYDROCORTISONE
  10. A-HYDROCORT [Concomitant]
     Active Substance: HYDROCORTISONE SODIUM SUCCINATE
  11. SAPHRIS [Concomitant]
     Active Substance: ASENAPINE MALEATE
  12. SYNTHROID [Concomitant]
     Active Substance: LEVOTHYROXINE SODIUM
  13. DDAVP [Concomitant]
     Active Substance: DESMOPRESSIN ACETATE
  14. DESMOPRESSIN [Concomitant]
     Active Substance: DESMOPRESSIN
  15. DIOVAN [Concomitant]
     Active Substance: VALSARTAN
  16. EFFEXOR [Concomitant]
     Active Substance: VENLAFAXINE HYDROCHLORIDE
  17. NEXIUM [Concomitant]
     Active Substance: ESOMEPRAZOLE MAGNESIUM
  18. LIPITOR [Concomitant]
     Active Substance: ATORVASTATIN CALCIUM
  19. LORAZEPAM. [Concomitant]
     Active Substance: LORAZEPAM
  20. NUCYNTA [Concomitant]
     Active Substance: TAPENTADOL HYDROCHLORIDE
  21. ATORVASTATIN [Concomitant]
     Active Substance: ATORVASTATIN
  22. LEVOXYL [Concomitant]
     Active Substance: LEVOTHYROXINE SODIUM

REACTIONS (1)
  - Abdominal pain [None]
